FAERS Safety Report 10111157 (Version 4)
Quarter: 2015Q1

REPORT INFORMATION
  Report Type: Spontaneous
  Country: US (occurrence: None)
  Receive Date: 20140421
  Receipt Date: 20150120
  Transmission Date: 20150720
  Serious: No
  Sender: FDA-Public Use
  Company Number: AEGR000248

PATIENT
  Age: 79 Year
  Sex: Female
  Weight: 79.4 kg

DRUGS (20)
  1. PLAVIX [Concomitant]
     Active Substance: CLOPIDOGREL BISULFATE
  2. NIACIN (NICOTINIC ACID) [Concomitant]
  3. ATROVENT [Concomitant]
     Active Substance: IPRATROPIUM BROMIDE
  4. XALATAN [Concomitant]
     Active Substance: LATANOPROST
  5. NEXIUM [Concomitant]
     Active Substance: ESOMEPRAZOLE MAGNESIUM
  6. JUXTAPID [Suspect]
     Active Substance: LOMITAPIDE MESYLATE
     Indication: TYPE IIA HYPERLIPIDAEMIA
     Route: 048
     Dates: start: 201312, end: 201405
  7. VITAMIN C [Concomitant]
     Active Substance: ASCORBIC ACID
  8. NITROGLYCERIN (GLYCERYL TRINITRATE) [Concomitant]
     Active Substance: NITROGLYCERIN
  9. TIMOLOL (TIMOLOL MALEATE) [Concomitant]
  10. BENICAR [Concomitant]
     Active Substance: OLMESARTAN MEDOXOMIL
  11. ACIPHEX [Concomitant]
     Active Substance: RABEPRAZOLE SODIUM
  12. OMEGA 3 (FISH OIL) [Concomitant]
     Active Substance: OMEGA-3 FATTY ACIDS
  13. VITAMIN D (ERGOCALCIFEROL) [Concomitant]
     Active Substance: ERGOCALCIFEROL
  14. ASA (ACETYLSALICYLIC AICD) [Concomitant]
  15. RANEXA (RANOLAZINE) [Concomitant]
  16. ISOSORBIDE [Concomitant]
     Active Substance: ISOSORBIDE
  17. WELCHOL (COLESEVELAM HYDROCHLORIDE) (625 MILLIGRAM, TABLET) (COLESEVELAM HYDROCHLORIDE) [Concomitant]
     Active Substance: COLESEVELAM HYDROCHLORIDE
  18. NIASPAN (NICOTINIC ACID) [Concomitant]
  19. METOPROLOL (METOPROLOL TARTRATE) [Concomitant]
     Active Substance: METOPROLOL TARTRATE
  20. LEXAPRO [Concomitant]
     Active Substance: ESCITALOPRAM OXALATE

REACTIONS (15)
  - Abdominal distension [None]
  - Dysgeusia [None]
  - Decreased appetite [None]
  - Epistaxis [None]
  - Muscle spasms [None]
  - Diarrhoea [None]
  - Fatigue [None]
  - Apathy [None]
  - Weight decreased [None]
  - Eructation [None]
  - Eczema [None]
  - Liver function test abnormal [None]
  - Flatulence [None]
  - Asthenia [None]
  - Chills [None]

NARRATIVE: CASE EVENT DATE: 201312
